FAERS Safety Report 20831449 (Version 2)
Quarter: 2022Q2

REPORT INFORMATION
  Report Type: Report from Study
  Country: US (occurrence: US)
  Receive Date: 20220516
  Receipt Date: 20220517
  Transmission Date: 20220721
  Serious: Yes (Death, Hospitalization)
  Sender: FDA-Public Use
  Company Number: US-BRISTOL-MYERS SQUIBB COMPANY-2022-028674

PATIENT
  Age: 74 Year
  Sex: Female

DRUGS (3)
  1. DURVALUMAB [Suspect]
     Active Substance: DURVALUMAB
     Indication: Pancreatic carcinoma metastatic
     Dosage: ONCE SINGLE ADMINISTRATION
     Route: 042
     Dates: start: 20220224
  2. PACLITAXEL [Suspect]
     Active Substance: PACLITAXEL
     Indication: Pancreatic carcinoma metastatic
     Route: 042
     Dates: start: 20220224
  3. GEMCITABINE [Suspect]
     Active Substance: GEMCITABINE
     Indication: Pancreatic carcinoma metastatic
     Route: 042
     Dates: start: 20220224

REACTIONS (1)
  - Gastroenteritis [Fatal]

NARRATIVE: CASE EVENT DATE: 20220316
